FAERS Safety Report 9824975 (Version 1)
Quarter: 2014Q1

REPORT INFORMATION
  Report Type: Spontaneous
  Country: FR (occurrence: FR)
  Receive Date: 20140117
  Receipt Date: 20140117
  Transmission Date: 20141002
  Serious: Yes (Other)
  Sender: FDA-Public Use
  Company Number: FR-AMGEN-FRASP2014002519

PATIENT
  Age: 68 Year
  Sex: Male

DRUGS (3)
  1. XGEVA [Suspect]
     Indication: PRODUCT USED FOR UNKNOWN INDICATION
     Dosage: UNK
     Route: 065
     Dates: start: 201302
  2. DECAPEPTYL                         /00486501/ [Concomitant]
     Dosage: UNK
     Dates: start: 201302, end: 201310
  3. ANDROCUR [Concomitant]
     Dosage: UNK
     Dates: start: 201302, end: 201310

REACTIONS (2)
  - Respiratory alkalosis [Not Recovered/Not Resolved]
  - Dyspnoea [Not Recovered/Not Resolved]
